FAERS Safety Report 8224576-1 (Version None)
Quarter: 2012Q1

REPORT INFORMATION
  Report Type: 
  Country: None (occurrence: None)
  Receive Date: 20120321
  Receipt Date: 20120309
  Transmission Date: 20120608
  Serious: Yes (Hospitalization, Other)
  Sender: FDA-Public Use
  Company Number: SE-ELI_LILLY_AND_COMPANY-SE201203003630

PATIENT
  Age: 27 Year
  Sex: Male

DRUGS (3)
  1. SERTRALINE ACTAVIS [Concomitant]
  2. ZYPREXA [Suspect]
     Indication: SCHIZOPHRENIA
     Dosage: 15 MG, QD
     Route: 048
     Dates: start: 20100121, end: 20110425
  3. PROPAVAN [Concomitant]

REACTIONS (1)
  - PULMONARY EMBOLISM [None]
